FAERS Safety Report 5651729-9 (Version None)
Quarter: 2008Q1

REPORT INFORMATION
  Report Type: 
  Country: None (occurrence: None)
  Receive Date: 20080305
  Receipt Date: 20080225
  Transmission Date: 20080703
  Serious: Yes (Hospitalization, Other)
  Sender: FDA-Public Use
  Company Number: US-PFIZER INC-2007043872

PATIENT
  Sex: Male
  Weight: 108.9 kg

DRUGS (1)
  1. CELECOXIB [Suspect]
     Indication: BACK PAIN

REACTIONS (3)
  - AMNESIA [None]
  - DEPRESSION [None]
  - MYOCARDIAL INFARCTION [None]
